FAERS Safety Report 23723198 (Version 2)
Quarter: 2024Q2

REPORT INFORMATION
  Report Type: Report from Study
  Country: US (occurrence: US)
  Receive Date: 20240409
  Receipt Date: 20240512
  Transmission Date: 20240715
  Serious: No
  Sender: FDA-Public Use
  Company Number: US-AstraZeneca-CH-00598299A

PATIENT
  Age: 38 Year
  Sex: Female

DRUGS (2)
  1. STRENSIQ [Suspect]
     Active Substance: ASFOTASE ALFA
     Indication: Product used for unknown indication
     Dosage: UNK
     Route: 058
     Dates: start: 202310, end: 20231212
  2. TESSALON [Suspect]
     Active Substance: BENZONATATE
     Indication: Bronchitis
     Dosage: 1 PILL UNK
     Route: 065

REACTIONS (2)
  - Bronchitis [Recovering/Resolving]
  - Somnolence [Unknown]

NARRATIVE: CASE EVENT DATE: 20240301
